FAERS Safety Report 13601787 (Version 1)
Quarter: 2017Q2

REPORT INFORMATION
  Report Type: Spontaneous
  Country: US (occurrence: US)
  Receive Date: 20170531
  Receipt Date: 20170531
  Transmission Date: 20170830
  Serious: Yes (Life-Threatening, Disabling)
  Sender: FDA-Public Use
  Company Number: None

PATIENT
  Age: 9 Year
  Sex: Male

DRUGS (3)
  1. AZYTHROMYCIN ORAL SUSPENSION [Suspect]
     Active Substance: AZITHROMYCIN ANHYDROUS
     Indication: INFECTION
     Dosage: ?          QUANTITY:1 TEASPOON(S);?
     Route: 048
     Dates: start: 20170529, end: 20170529
  2. ALBUTEROL INHALER [Concomitant]
     Active Substance: ALBUTEROL
  3. GUMMY VITAMINS [Concomitant]

REACTIONS (1)
  - Product label confusion [None]

NARRATIVE: CASE EVENT DATE: 20170529
